FAERS Safety Report 12136360 (Version 3)
Quarter: 2016Q2

REPORT INFORMATION
  Report Type: Spontaneous
  Country: US (occurrence: US)
  Receive Date: 20160302
  Receipt Date: 20160418
  Transmission Date: 20160815
  Serious: No
  Sender: FDA-Public Use
  Company Number: US-PFIZER INC-2016070912

PATIENT
  Age: 15 Year
  Sex: Male
  Weight: 59 kg

DRUGS (2)
  1. DEPO-TESTOSTERONE [Suspect]
     Active Substance: TESTOSTERONE CYPIONATE
     Indication: TRANSGENDER HORMONAL THERAPY
     Dosage: 25 MG, WEEKLY (25MG INJECT 0.13ML)
     Dates: start: 2015
  2. DEPO-TESTOSTERONE [Suspect]
     Active Substance: TESTOSTERONE CYPIONATE
     Indication: DYSPHORIA
     Dosage: 50 MG, WEEKLY
     Route: 058

REACTIONS (7)
  - Abdominal pain upper [Not Recovered/Not Resolved]
  - Drug dose omission [Unknown]
  - Headache [Not Recovered/Not Resolved]
  - Product use issue [Unknown]
  - Menstrual disorder [Unknown]
  - Acne [Not Recovered/Not Resolved]
  - Incorrect route of drug administration [Unknown]
